FAERS Safety Report 7532876-3 (Version None)
Quarter: 2011Q2

REPORT INFORMATION
  Report Type: 
  Country: None (occurrence: None)
  Receive Date: 20110601
  Receipt Date: 20110520
  Transmission Date: 20111010
  Serious: Yes (Other)
  Sender: FDA-Public Use
  Company Number: 2011SP023678

PATIENT
  Age: 72 Year
  Sex: Female

DRUGS (1)
  1. DULERA TABLET [Suspect]
     Indication: ASTHMA
     Dosage: ; INH
     Route: 055

REACTIONS (5)
  - MYALGIA [None]
  - MUSCLE SPASMS [None]
  - ARTHRALGIA [None]
  - DYSTONIA [None]
  - BACK PAIN [None]
